FAERS Safety Report 14352135 (Version 4)
Quarter: 2019Q3

REPORT INFORMATION
  Report Type: Spontaneous
  Country: US (occurrence: US)
  Receive Date: 20180104
  Receipt Date: 20190904
  Transmission Date: 20191004
  Serious: Yes (Other)
  Sender: FDA-Public Use
  Company Number: US-PFIZER INC-2017551628

PATIENT
  Age: 64 Year
  Sex: Female
  Weight: 68.4 kg

DRUGS (17)
  1. XELJANZ XR [Suspect]
     Active Substance: TOFACITINIB CITRATE
     Indication: RHEUMATOID ARTHRITIS
     Dosage: 11 MG, 1X/DAY
     Route: 048
     Dates: start: 20170828
  2. PREDNISOLONE ACETATE. [Concomitant]
     Active Substance: PREDNISOLONE ACETATE
     Indication: UVEITIS
     Dosage: 2 GTT, ALTERNATE DAY (1% ONE DROP IN EACH EYE EVERY OTHER DAY)
     Route: 047
  3. ALPRAZOLAM. [Concomitant]
     Active Substance: ALPRAZOLAM
     Indication: ANXIETY
     Dosage: 0.25 MG, AS NEEDED
  4. METHOTREXATE. [Concomitant]
     Active Substance: METHOTREXATE
     Indication: RHEUMATOID ARTHRITIS
     Dosage: 50 MG/ML, WEEKLY
  5. LEUCOVORIN. [Concomitant]
     Active Substance: LEUCOVORIN
     Dosage: 5 MG, WEEKLY (SHE TAKES 24 HOURS AFTER METHOTREXATE INJECTION)
  6. PREDNISONE. [Concomitant]
     Active Substance: PREDNISONE
     Indication: RHEUMATOID ARTHRITIS
     Dosage: 5 MG, 2X/DAY
     Route: 048
  7. FOLIC ACID. [Concomitant]
     Active Substance: FOLIC ACID
     Indication: BLOOD FOLATE DECREASED
     Dosage: 2 MG, 1X/DAY (1MG TWO TABLETS EVERY MORNING)
     Route: 048
  8. ZIOPTAN [Concomitant]
     Active Substance: TAFLUPROST
     Indication: UVEITIS
     Dosage: 2 GTT, 1X/DAY (0.0015% ONE DROP IN EACH EYE AT BEDTIME)
     Route: 047
     Dates: start: 201710
  9. HYDROCODONE BITARTRATE AND ACETAMINOPHEN [Concomitant]
     Active Substance: ACETAMINOPHEN\HYDROCODONE BITARTRATE
     Indication: MUSCULOSKELETAL DISORDER
  10. AMLODIPINE [Concomitant]
     Active Substance: AMLODIPINE BESYLATE
     Dosage: 5 MG, 1X/DAY (5MG TABLET ONCE A DAY AT BEDTIME BY MOUTH)
     Route: 048
  11. GABAPENTIN. [Concomitant]
     Active Substance: GABAPENTIN
     Indication: BACK DISORDER
     Dosage: 300 MG, 3X/DAY
     Route: 048
  12. GABAPENTIN. [Concomitant]
     Active Substance: GABAPENTIN
     Indication: MUSCULOSKELETAL DISORDER
  13. COSOPT [Concomitant]
     Active Substance: DORZOLAMIDE HYDROCHLORIDE\TIMOLOL MALEATE
     Indication: GLAUCOMA
     Dosage: 2 GTT, 2X/DAY (2%/0.5% ONE DROP IN EACH TWICE A DAY)
     Route: 047
     Dates: start: 201710
  14. HYDROCODONE BITARTRATE AND ACETAMINOPHEN [Concomitant]
     Active Substance: ACETAMINOPHEN\HYDROCODONE BITARTRATE
     Indication: BACK DISORDER
     Dosage: 0.5 DF, 1X/DAY
     Route: 048
     Dates: start: 201710
  15. ALPHAGAN P [Concomitant]
     Active Substance: BRIMONIDINE TARTRATE
     Indication: GLAUCOMA
     Dosage: 2 GTT, 2X/DAY (0.1% ONE DROP IN EACH EYE TWO TIMES A DAY)
     Route: 047
  16. COSOPT [Concomitant]
     Active Substance: DORZOLAMIDE HYDROCHLORIDE\TIMOLOL MALEATE
     Indication: UVEITIS
  17. AMLODIPINE [Concomitant]
     Active Substance: AMLODIPINE BESYLATE
     Indication: BLOOD PRESSURE ABNORMAL
     Dosage: 2.5 MG, UNK

REACTIONS (6)
  - Influenza [Recovered/Resolved]
  - Large intestine infection [Unknown]
  - Syncope [Unknown]
  - Vitreous floaters [Unknown]
  - Diverticulitis [Unknown]
  - Rash [Unknown]

NARRATIVE: CASE EVENT DATE: 201711
